FAERS Safety Report 9097093 (Version 1)
Quarter: 2013Q1

REPORT INFORMATION
  Report Type: Spontaneous
  Country: US (occurrence: None)
  Receive Date: 20130125
  Receipt Date: 20130125
  Transmission Date: 20140127
  Serious: Yes (Hospitalization, Other)
  Sender: FDA-Public Use
  Company Number: KV201300006

PATIENT
  Age: 35 Year
  Sex: Female

DRUGS (2)
  1. MAKENA (HYDROXYPROGESTERONE CAPROATE 250 MG/ML) INJECTION, 250 MG/ML [Suspect]
     Route: 030
     Dates: start: 20120524, end: 201208
  2. FIORICET (BUTALBITAL, CAFFEINE, PARACETAMOL) [Concomitant]

REACTIONS (2)
  - Shortened cervix [None]
  - Premature delivery [None]
